FAERS Safety Report 7335495-7 (Version None)
Quarter: 2011Q1

REPORT INFORMATION
  Report Type: 
  Country: None (occurrence: None)
  Receive Date: 20110301
  Receipt Date: 20110301
  Transmission Date: 20110831
  Serious: Yes (Hospitalization)
  Sender: FDA-Public Use
  Company Number: None

PATIENT
  Age: 50 Year
  Sex: Male
  Weight: 95.2554 kg

DRUGS (1)
  1. NUCYNTA [Suspect]
     Indication: PAIN MANAGEMENT
     Dosage: 50MG ONE DAILY PO
     Route: 048
     Dates: start: 20101214, end: 20110211

REACTIONS (10)
  - RESPIRATORY RATE INCREASED [None]
  - SERUM SEROTONIN INCREASED [None]
  - BLOOD PRESSURE INCREASED [None]
  - PERSONALITY CHANGE [None]
  - FAMILY STRESS [None]
  - HEART RATE INCREASED [None]
  - FEELING HOT [None]
  - AGITATION [None]
  - PALPITATIONS [None]
  - DYSPNOEA [None]
